FAERS Safety Report 8186816-7 (Version None)
Quarter: 2012Q1

REPORT INFORMATION
  Report Type: 
  Country: None (occurrence: None)
  Receive Date: 20120306
  Receipt Date: 20120223
  Transmission Date: 20120608
  Serious: Yes (Other)
  Sender: FDA-Public Use
  Company Number: AU-BRISTOL-MYERS SQUIBB COMPANY-16427270

PATIENT
  Sex: Male

DRUGS (2)
  1. IRINOTECAN HCL [Concomitant]
     Indication: COLORECTAL CANCER
  2. ERBITUX [Suspect]
     Indication: COLORECTAL CANCER

REACTIONS (2)
  - SKIN ULCER [None]
  - RASH [None]
